FAERS Safety Report 24369787 (Version 1)
Quarter: 2024Q3

REPORT INFORMATION
  Report Type: Spontaneous
  Country: AT (occurrence: AT)
  Receive Date: 20240927
  Receipt Date: 20240927
  Transmission Date: 20241017
  Serious: Yes (Hospitalization, Other)
  Sender: CELLTRION
  Company Number: None

PATIENT

DRUGS (15)
  1. HERZUMA [Suspect]
     Active Substance: TRASTUZUMAB-PKRB
     Indication: Breast neoplasm
     Dosage: 354 MG
     Dates: start: 20231213, end: 20231213
  2. HERZUMA [Suspect]
     Active Substance: TRASTUZUMAB-PKRB
     Dosage: 354 MG
     Dates: start: 20240103, end: 20240103
  3. HERZUMA [Suspect]
     Active Substance: TRASTUZUMAB-PKRB
     Dosage: 354 MG
     Dates: start: 20240131, end: 20240131
  4. HERZUMA [Suspect]
     Active Substance: TRASTUZUMAB-PKRB
     Dosage: 354 MG
     Dates: start: 20240229, end: 20240229
  5. ZOFRAN [Suspect]
     Active Substance: ONDANSETRON HYDROCHLORIDE
     Indication: Vomiting
  6. CYCLOPHOSPHAMIDE [Suspect]
     Active Substance: CYCLOPHOSPHAMIDE
     Indication: Breast neoplasm
     Dosage: 10005.5 MG
     Dates: start: 20231213, end: 20231213
  7. CYCLOPHOSPHAMIDE [Suspect]
     Active Substance: CYCLOPHOSPHAMIDE
     Dosage: 10005.5 MG
     Dates: start: 20240103, end: 20240103
  8. CYCLOPHOSPHAMIDE [Suspect]
     Active Substance: CYCLOPHOSPHAMIDE
     Dosage: 10005.5 MG
     Dates: start: 20240131, end: 20240131
  9. EPIRUBICIN HYDROCHLORIDE [Suspect]
     Active Substance: EPIRUBICIN HYDROCHLORIDE
     Indication: Breast neoplasm
     Dosage: 150.82 MG
     Dates: start: 20231213, end: 20231213
  10. EPIRUBICIN HYDROCHLORIDE [Suspect]
     Active Substance: EPIRUBICIN HYDROCHLORIDE
     Dosage: 150.82 MG
     Dates: start: 20240103, end: 20240103
  11. EPIRUBICIN HYDROCHLORIDE [Suspect]
     Active Substance: EPIRUBICIN HYDROCHLORIDE
     Dosage: 150.82 MG
     Dates: start: 20240131, end: 20240131
  12. PERJETA [Suspect]
     Active Substance: PERTUZUMAB
     Indication: Breast neoplasm
     Dosage: 420 MG
     Dates: start: 20231213, end: 20231213
  13. PERJETA [Suspect]
     Active Substance: PERTUZUMAB
     Dosage: 420 MG
     Dates: start: 20240103, end: 20240103
  14. PERJETA [Suspect]
     Active Substance: PERTUZUMAB
     Dosage: 420 MG
     Dates: start: 20240131, end: 20240131
  15. PERJETA [Suspect]
     Active Substance: PERTUZUMAB
     Dosage: 420 MG
     Dates: start: 20240229, end: 20240229

REACTIONS (8)
  - General physical health deterioration [Recovered/Resolved]
  - Serum ferritin increased [Recovering/Resolving]
  - Blood lactate dehydrogenase increased [Recovering/Resolving]
  - Liver function test abnormal [Recovering/Resolving]
  - Thrombocytopenia [Recovering/Resolving]
  - Asthenia [Recovered/Resolved]
  - Diarrhoea [Recovered/Resolved]
  - Intentional product use issue [Unknown]

NARRATIVE: CASE EVENT DATE: 20240131
